FAERS Safety Report 16514768 (Version 1)
Quarter: 2019Q3

REPORT INFORMATION
  Report Type: Report from Study
  Country: US (occurrence: US)
  Receive Date: 20190702
  Receipt Date: 20190702
  Transmission Date: 20191004
  Serious: Yes (Other)
  Sender: FDA-Public Use
  Company Number: US-GILEAD-2019-0413677

PATIENT
  Age: 81 Year
  Sex: Female
  Weight: 48.53 kg

DRUGS (1)
  1. AMBRISENTAN [Suspect]
     Active Substance: AMBRISENTAN
     Indication: PRODUCT USED FOR UNKNOWN INDICATION
     Dosage: 5 MG, QD
     Route: 048
     Dates: start: 20190308

REACTIONS (4)
  - Dyspnoea [Unknown]
  - Syncope [Unknown]
  - Vision blurred [Unknown]
  - Dizziness [Unknown]
